FAERS Safety Report 9540505 (Version 2)
Quarter: 2013Q4

REPORT INFORMATION
  Report Type: Spontaneous
  Country: KR (occurrence: KR)
  Receive Date: 20130920
  Receipt Date: 20131219
  Transmission Date: 20140711
  Serious: Yes (Hospitalization)
  Sender: FDA-Public Use
  Company Number: KR-B.I. PHARMACEUTICALS,INC./RIDGEFIELD-2013-BI-29425YA

PATIENT
  Age: 39 Year
  Sex: Female
  Weight: 49 kg

DRUGS (11)
  1. TAMSULOSINA [Suspect]
     Indication: HYDRONEPHROSIS
     Dosage: FORMULATION: ORODISPERSIBLE CR TABLET
     Route: 048
     Dates: start: 20110120
  2. TAMSULOSINA [Suspect]
     Indication: BLADDER DYSFUNCTION
  3. PROGRAF [Suspect]
     Indication: LUPUS NEPHRITIS
     Dosage: 3.5 MG
     Route: 048
     Dates: start: 20121126, end: 20130421
  4. PROGRAF [Suspect]
     Dosage: 2.5 MG
     Route: 048
     Dates: start: 20121015, end: 20121125
  5. PROGRAF [Suspect]
     Dosage: 3 MG
     Route: 048
     Dates: start: 20130422, end: 20130716
  6. PROGRAF [Suspect]
     Dosage: 4 MG
     Route: 048
     Dates: start: 20130717
  7. FEROBA [Concomitant]
     Route: 048
     Dates: start: 20091008
  8. PREDNISOLONE [Concomitant]
     Route: 048
     Dates: start: 20080522
  9. CALCIUM CARBONATE [Concomitant]
     Route: 048
     Dates: start: 20111031
  10. TACROLIMUS [Concomitant]
     Dates: start: 20121015
  11. CORTICOSTEROID NOS [Concomitant]
     Dates: start: 20121008

REACTIONS (3)
  - Cystitis [Recovered/Resolved]
  - Abdominal pain [Recovered/Resolved]
  - Off label use [Not Recovered/Not Resolved]
